FAERS Safety Report 13092707 (Version 1)
Quarter: 2017Q1

REPORT INFORMATION
  Report Type: Spontaneous
  Country: US (occurrence: US)
  Receive Date: 20170105
  Receipt Date: 20170105
  Transmission Date: 20170428
  Serious: No
  Sender: FDA-Public Use
  Company Number: None

PATIENT
  Age: 36 Year
  Sex: Female

DRUGS (1)
  1. COPAXONE [Suspect]
     Active Substance: GLATIRAMER ACETATE
     Indication: MULTIPLE SCLEROSIS
     Route: 058
     Dates: start: 20161010, end: 20170103

REACTIONS (8)
  - Muscle spasms [None]
  - Nausea [None]
  - Depression [None]
  - Hallucination [None]
  - Migraine [None]
  - Seizure [None]
  - Cognitive disorder [None]
  - Sleep disorder [None]

NARRATIVE: CASE EVENT DATE: 20161003
